FAERS Safety Report 5868223-2 (Version None)
Quarter: 2008Q3

REPORT INFORMATION
  Report Type: 
  Country: None (occurrence: None)
  Receive Date: 20080902
  Receipt Date: 20080821
  Transmission Date: 20090109
  Serious: Yes (Hospitalization)
  Sender: FDA-Public Use
  Company Number: FR-PFIZER INC-2008070421

PATIENT
  Sex: Male

DRUGS (7)
  1. XANAX [Suspect]
     Route: 048
  2. HEPARIN [Suspect]
     Route: 042
     Dates: start: 20080325, end: 20080328
  3. LEVOTHYROX [Suspect]
     Route: 048
  4. LASIX [Suspect]
     Route: 048
  5. CORDARONE [Suspect]
     Route: 048
  6. CARDENSIEL [Suspect]
     Route: 048
  7. INSULIN [Concomitant]
     Dates: start: 20080325, end: 20080328

REACTIONS (2)
  - PRURITUS [None]
  - URTICARIA [None]
